FAERS Safety Report 4551517-0 (Version None)
Quarter: 2005Q1

REPORT INFORMATION
  Report Type: 
  Country: None (occurrence: None)
  Receive Date: 20050111
  Receipt Date: 20041229
  Transmission Date: 20050727
  Serious: Yes (Hospitalization)
  Sender: FDA-Public Use
  Company Number: 2004095142

PATIENT
  Age: 55 Year
  Sex: Male
  Weight: 104.3273 kg

DRUGS (7)
  1. TIKOSYN [Suspect]
     Indication: ATRIAL FIBRILLATION
     Dosage: 1000 MCG (500 MCG, 2 IN 1 D), ORAL
     Route: 048
     Dates: start: 20041026
  2. ANTIDEPRESSANTS (ANTIDEPRESSANTS) [Suspect]
     Indication: DEPRESSION
  3. WARFARIN SODIUM [Concomitant]
  4. ASPIRIN [Concomitant]
  5. PAROXETINE HCL [Concomitant]
  6. METOPROLOL TARTRATE [Concomitant]
  7. ALPRAZOLAM [Concomitant]

REACTIONS (4)
  - CONDITION AGGRAVATED [None]
  - DEPRESSION [None]
  - DRUG INTERACTION [None]
  - ELECTROCARDIOGRAM QT PROLONGED [None]
